FAERS Safety Report 9808687 (Version 3)
Quarter: 2014Q3

REPORT INFORMATION
  Report Type: Report from Study
  Country: GB (occurrence: GB)
  Receive Date: 20140110
  Receipt Date: 20140930
  Transmission Date: 20150326
  Serious: Yes (Death, Hospitalization)
  Sender: FDA-Public Use
  Company Number: GB-BRISTOL-MYERS SQUIBB COMPANY-19953579

PATIENT
  Age: 63 Year
  Sex: Male

DRUGS (7)
  1. SALBUTAMOL INHALER [Concomitant]
     Dosage: INHALED 4 TIMES A DAY
     Route: 055
     Dates: start: 20130829
  2. ETOPOSIDE. [Suspect]
     Active Substance: ETOPOSIDE
     Indication: SMALL CELL LUNG CANCER
     Dosage: RECENT DOSE -06 SEP2013
     Dates: start: 20130430
  3. DOMPERIDONE [Concomitant]
     Active Substance: DOMPERIDONE
     Dosage: 40-80MG
     Route: 048
     Dates: start: 20130819
  4. BECLOMETASONE DIPROPIONATE+FORMOTEROL FUMARATE [Concomitant]
     Dosage: 1 DF = 100/6 MCQ
     Route: 055
     Dates: start: 20130903
  5. CARBOPLATIN. [Suspect]
     Active Substance: CARBOPLATIN
     Indication: SMALL CELL LUNG CANCER
     Dosage: RECENT DOSE- 06 SEP2013
     Dates: start: 20130430
  6. OMEPRAZOLE. [Concomitant]
     Active Substance: OMEPRAZOLE
     Route: 048
     Dates: start: 20130813
  7. IPILIMUMAB [Suspect]
     Active Substance: IPILIMUMAB
     Indication: SMALL CELL LUNG CANCER
     Dosage: RECENT DOSE-02AUG 2013
     Dates: start: 20130621

REACTIONS (3)
  - Nervous system disorder [Fatal]
  - Lung infection [Fatal]
  - Dysarthria [Not Recovered/Not Resolved]

NARRATIVE: CASE EVENT DATE: 20131213
